FAERS Safety Report 14128451 (Version 1)
Quarter: 2017Q4

REPORT INFORMATION
  Report Type: Spontaneous
  Country: FR (occurrence: FR)
  Receive Date: 20171026
  Receipt Date: 20171026
  Transmission Date: 20180321
  Serious: Yes (Other)
  Sender: FDA-Public Use
  Company Number: FR-MERCK KGAA-2031541

PATIENT
  Age: 71 Year
  Sex: Female

DRUGS (3)
  1. LEVOTHYROX 50 [Suspect]
     Active Substance: LEVOTHYROXINE
     Route: 048
     Dates: start: 201706
  2. NOVOTHYROX [Suspect]
     Active Substance: LEVOTHYROXINE SODIUM
     Indication: THYROIDECTOMY
     Route: 048
     Dates: start: 201706
  3. MONOPROST [Concomitant]
     Active Substance: LATANOPROST
     Route: 047

REACTIONS (6)
  - Hyperthyroidism [Unknown]
  - Gastrointestinal disorder [Unknown]
  - Hot flush [Unknown]
  - Migraine [Unknown]
  - Poor quality sleep [Unknown]
  - Nausea [Unknown]
